FAERS Safety Report 5884405-8 (Version None)
Quarter: 2008Q3

REPORT INFORMATION
  Report Type: 
  Country: None (occurrence: None)
  Receive Date: 20080915
  Receipt Date: 20080908
  Transmission Date: 20090109
  Serious: Yes (Hospitalization)
  Sender: FDA-Public Use
  Company Number: DE-MERCK-0808DEU00096

PATIENT
  Sex: Male
  Weight: 80 kg

DRUGS (1)
  1. COSOPT [Suspect]
     Indication: GLAUCOMA
     Route: 047
     Dates: start: 20060901, end: 20080101

REACTIONS (6)
  - BLINDNESS TRANSIENT [None]
  - DIZZINESS [None]
  - EYE IRRITATION [None]
  - OCULAR HYPERAEMIA [None]
  - SYNCOPE [None]
  - VISUAL IMPAIRMENT [None]
